FAERS Safety Report 4707728-4 (Version None)
Quarter: 2005Q2

REPORT INFORMATION
  Report Type: 
  Country: None (occurrence: None)
  Receive Date: 20050629
  Receipt Date: 20050517
  Transmission Date: 20051028
  Serious: No
  Sender: FDA-Public Use
  Company Number: 05P-163-0300646-00

PATIENT
  Age: 55 Year
  Sex: Female
  Weight: 64.4108 kg

DRUGS (9)
  1. HUMIRA [Suspect]
     Indication: RHEUMATOID ARTHRITIS
     Dosage: 40 MG, 1 IN 2 WK, SUBCUTANEOUS
     Route: 058
     Dates: start: 20050429
  2. METHOTREXATE [Concomitant]
  3. PREDNISONE TAB [Concomitant]
  4. NABUMETONE [Concomitant]
  5. SERTRALINE HYDROCHLORIDE [Concomitant]
  6. FLUVASTATIN SODIUM [Concomitant]
  7. ESOMEPRAZOLE [Concomitant]
  8. LEVOTHYROXINE SODIUM [Concomitant]
  9. FOLIC ACID [Concomitant]

REACTIONS (7)
  - ASTHENIA [None]
  - CHILLS [None]
  - DYSPNOEA [None]
  - EYE PAIN [None]
  - FATIGUE [None]
  - OCULAR HYPERAEMIA [None]
  - PYREXIA [None]
